FAERS Safety Report 17196861 (Version 1)
Quarter: 2019Q4

REPORT INFORMATION
  Report Type: Spontaneous
  Country: US (occurrence: US)
  Receive Date: 20191202
  Receipt Date: 20191202
  Transmission Date: 20200122
  Serious: No
  Sender: FDA-Public Use
  Company Number: None

PATIENT
  Age: 67 Year
  Sex: Female
  Weight: 64.86 kg

DRUGS (9)
  1. POTASSIUM CHLORIDE. [Concomitant]
     Active Substance: POTASSIUM CHLORIDE
  2. PRAVASTATIN. [Concomitant]
     Active Substance: PRAVASTATIN
  3. COQ10 [Concomitant]
     Active Substance: UBIDECARENONE
  4. CALCIUM MALATE [Concomitant]
  5. MAGNESIUM [Concomitant]
     Active Substance: MAGNESIUM
  6. HYDROCHLOROTHIAZIDE. [Concomitant]
     Active Substance: HYDROCHLOROTHIAZIDE
  7. VITAMIN C [Concomitant]
     Active Substance: ASCORBIC ACID
  8. LIQ B12 [Concomitant]
  9. AZELASTINE HCL NASAL SOLUTION (NASAL SPRAY) 0.15% 205.5MCG PER SPRAY [Suspect]
     Active Substance: AZELASTINE HYDROCHLORIDE
     Indication: SINUS OPERATION
     Dosage: ?          QUANTITY:30 ML MILLILITRE(S);?
     Route: 045
     Dates: start: 20191027, end: 20191030

REACTIONS (8)
  - Head discomfort [None]
  - Restlessness [None]
  - Urine output decreased [None]
  - Asthenia [None]
  - Abnormal dreams [None]
  - Infrequent bowel movements [None]
  - Depressed level of consciousness [None]
  - Headache [None]

NARRATIVE: CASE EVENT DATE: 20191028
